FAERS Safety Report 12368011 (Version 6)
Quarter: 2016Q3

REPORT INFORMATION
  Report Type: Spontaneous
  Country: JP (occurrence: JP)
  Receive Date: 20160513
  Receipt Date: 20160708
  Transmission Date: 20161109
  Serious: Yes (Hospitalization, Other)
  Sender: FDA-Public Use
  Company Number: JP-ABBVIE-16P-087-1627649-00

PATIENT
  Age: 26 Year
  Sex: Female
  Weight: 44 kg

DRUGS (16)
  1. METHOTREXATE. [Suspect]
     Active Substance: METHOTREXATE
     Indication: B PRECURSOR TYPE ACUTE LEUKAEMIA
     Dosage: 3000 MG/M2, UNK
     Route: 041
  2. METHOTREXATE. [Suspect]
     Active Substance: METHOTREXATE
     Dosage: 150 MG/M2, UNK
     Route: 041
  3. PREDNISOLONE. [Suspect]
     Active Substance: PREDNISOLONE
     Dosage: 40 MG/M2, UNK
     Route: 048
  4. LEUNASE [Suspect]
     Active Substance: ASPARAGINASE
     Dosage: UNK
     Route: 041
  5. LEUPLIN [Suspect]
     Active Substance: LEUPROLIDE ACETATE
     Indication: PROPHYLAXIS
     Dosage: 1.88 MG, Q4WEEKS
     Route: 058
     Dates: start: 20100127, end: 20101015
  6. DECADRON [Suspect]
     Active Substance: DEXAMETHASONE
     Indication: B PRECURSOR TYPE ACUTE LEUKAEMIA
     Dosage: 10 MG/M2, UNK
     Route: 041
  7. LEUKERIN [Suspect]
     Active Substance: MERCAPTOPURINE
     Indication: B PRECURSOR TYPE ACUTE LEUKAEMIA
     Dosage: 50 MG/M2, UNK
     Route: 048
  8. PREDNISOLONE. [Suspect]
     Active Substance: PREDNISOLONE
     Indication: B PRECURSOR TYPE ACUTE LEUKAEMIA
     Dosage: 60 MG/M2, UNK
     Route: 048
     Dates: start: 201001
  9. ENDOXAN [Suspect]
     Active Substance: CYCLOPHOSPHAMIDE
     Indication: B PRECURSOR TYPE ACUTE LEUKAEMIA
     Dosage: 1200 MG/M2, UNK
     Route: 041
  10. ENDOXAN [Suspect]
     Active Substance: CYCLOPHOSPHAMIDE
     Dosage: 750 MG/M2, UNK
     Route: 041
  11. THERARUBICIN [Suspect]
     Active Substance: PIRARUBICIN HYDROCHLORIDE
     Indication: B PRECURSOR TYPE ACUTE LEUKAEMIA
     Dosage: 25 MG/M2, UNK
     Route: 041
  12. ONCOVIN [Suspect]
     Active Substance: VINCRISTINE SULFATE
     Indication: B PRECURSOR TYPE ACUTE LEUKAEMIA
     Dosage: 1.50 MG/M2, UNK
     Route: 042
  13. ENDOXAN [Suspect]
     Active Substance: CYCLOPHOSPHAMIDE
     Dosage: 500 MG/M2, UNK
     Route: 041
     Dates: end: 201010
  14. ENDOXAN [Suspect]
     Active Substance: CYCLOPHOSPHAMIDE
     Dosage: 600 MG/M2, UNK
     Route: 041
  15. LEUNASE [Suspect]
     Active Substance: ASPARAGINASE
     Indication: B PRECURSOR TYPE ACUTE LEUKAEMIA
     Dosage: UNK
     Route: 041
  16. CYLOCIDE [Suspect]
     Active Substance: CYTARABINE
     Indication: B PRECURSOR TYPE ACUTE LEUKAEMIA
     Dosage: 75 MG/M2, UNK
     Route: 041

REACTIONS (8)
  - Vulvovaginal adhesion [Recovered/Resolved]
  - Amenorrhoea [Recovering/Resolving]
  - Haematocolpos [Recovered/Resolved]
  - Uterine haemorrhage [Recovered/Resolved]
  - Abdominal pain [Recovering/Resolving]
  - Vaginal haemorrhage [Recovering/Resolving]
  - Vaginal stricture [Recovered/Resolved]
  - Off label use [Recovering/Resolving]
